FAERS Safety Report 7499792-7 (Version None)
Quarter: 2011Q2

REPORT INFORMATION
  Report Type: 
  Country: None (occurrence: None)
  Receive Date: 20110524
  Receipt Date: 20110523
  Transmission Date: 20111010
  Serious: No
  Sender: FDA-Public Use
  Company Number: US-TEVA-283016USA

PATIENT
  Sex: Female
  Weight: 62.652 kg

DRUGS (1)
  1. PLAN B ONE-STEP [Suspect]
     Indication: POST COITAL CONTRACEPTION
     Dosage: 1.5 MILLIGRAM;
     Route: 048

REACTIONS (8)
  - FATIGUE [None]
  - DIZZINESS [None]
  - NAUSEA [None]
  - PREGNANCY AFTER POST COITAL CONTRACEPTION [None]
  - ABDOMINAL PAIN [None]
  - DECREASED APPETITE [None]
  - DRUG INEFFECTIVE [None]
  - HEADACHE [None]
